FAERS Safety Report 12896900 (Version 1)
Quarter: 2016Q4

REPORT INFORMATION
  Report Type: Spontaneous
  Country: US (occurrence: US)
  Receive Date: 20161031
  Receipt Date: 20161031
  Transmission Date: 20170207
  Serious: No
  Sender: FDA-Public Use
  Company Number: US-PFIZER INC-2016503481

PATIENT
  Age: 59 Year
  Sex: Female
  Weight: 58.6 kg

DRUGS (6)
  1. LITHIUM. [Concomitant]
     Active Substance: LITHIUM
     Indication: MENTAL DISORDER
     Dosage: UNK
     Route: 048
     Dates: start: 2008
  2. LEXAPRO [Concomitant]
     Active Substance: ESCITALOPRAM OXALATE
     Indication: DEPRESSION
     Dosage: UNK
     Route: 048
     Dates: start: 2008
  3. CHANTIX [Suspect]
     Active Substance: VARENICLINE TARTRATE
     Dosage: 1 MG, 2X/DAY(ONE IN THE MORNING AND ONE AT NIGHT)
     Route: 048
     Dates: end: 20161025
  4. LEVOTHYROXINE. [Concomitant]
     Active Substance: LEVOTHYROXINE
     Indication: HYPERTHYROIDISM
     Dosage: UNK
     Route: 048
     Dates: start: 2012
  5. ABILIFY [Concomitant]
     Active Substance: ARIPIPRAZOLE
     Indication: DEPRESSION
     Dosage: UNK
     Route: 048
  6. CHANTIX [Suspect]
     Active Substance: VARENICLINE TARTRATE
     Indication: SMOKING CESSATION THERAPY
     Dosage: 0.5 MG, 2X/DAY
     Route: 048

REACTIONS (4)
  - Vomiting [Recovered/Resolved]
  - Asthenia [Unknown]
  - Feeling abnormal [Recovered/Resolved]
  - Malaise [Recovered/Resolved]

NARRATIVE: CASE EVENT DATE: 20161022
